FAERS Safety Report 9475479 (Version 1)
Quarter: 2013Q3

REPORT INFORMATION
  Report Type: Spontaneous
  Country: US (occurrence: US)
  Receive Date: 20130826
  Receipt Date: 20130826
  Transmission Date: 20140515
  Serious: No
  Sender: FDA-Public Use
  Company Number: US-009507513-1308USA009882

PATIENT
  Sex: Female

DRUGS (2)
  1. DULERA [Suspect]
     Indication: SINUSITIS
     Dosage: UNK
     Route: 055
  2. ALBUTEROL [Concomitant]
     Dosage: 2 PUFFS/ EVERY 4-6 HOURS AS NEEDED

REACTIONS (1)
  - Drug ineffective [Not Recovered/Not Resolved]
